FAERS Safety Report 5025945-3 (Version None)
Quarter: 2006Q2

REPORT INFORMATION
  Report Type: 
  Country: None (occurrence: None)
  Receive Date: 20060614
  Receipt Date: 20060608
  Transmission Date: 20061013
  Serious: Yes (Life-Threatening, Hospitalization)
  Sender: FDA-Public Use
  Company Number: PT-GLAXOSMITHKLINE-B0427390A

PATIENT
  Age: 37 Year
  Sex: Male
  Weight: 100 kg

DRUGS (6)
  1. ABACAVIR SULFATE LAMIVUDINE AND ZIDOVUDINE [Suspect]
     Indication: HIV INFECTION
     Route: 048
     Dates: start: 20060413, end: 20060429
  2. NEVIRAPINE [Concomitant]
     Indication: HIV INFECTION
     Route: 048
     Dates: start: 20060112, end: 20060123
  3. LAMIVUDINE [Concomitant]
     Indication: HIV INFECTION
     Route: 048
     Dates: start: 20060112
  4. ZIDOVUDINE [Concomitant]
     Indication: HIV INFECTION
     Route: 048
     Dates: start: 20060112
  5. TRIMETHOPRIM [Concomitant]
     Indication: HIV INFECTION
     Route: 048
     Dates: start: 20050101
  6. SULPHAMETHOXAZOLE [Concomitant]
     Indication: HIV INFECTION
     Route: 048
     Dates: start: 20050101

REACTIONS (11)
  - ARTHRALGIA [None]
  - CHILLS [None]
  - DIARRHOEA [None]
  - HEPATITIS CHOLESTATIC [None]
  - INTERNATIONAL NORMALISED RATIO DECREASED [None]
  - MYALGIA [None]
  - PYREXIA [None]
  - RASH [None]
  - RENAL FAILURE [None]
  - TRANSAMINASES INCREASED [None]
  - VOMITING [None]
